FAERS Safety Report 15143234 (Version 2)
Quarter: 2018Q4

REPORT INFORMATION
  Report Type: Spontaneous
  Country: US (occurrence: US)
  Receive Date: 20180713
  Receipt Date: 20181015
  Transmission Date: 20190204
  Serious: No
  Sender: FDA-Public Use
  Company Number: US-ASTRAZENECA-2018SE79703

PATIENT
  Age: 24559 Day
  Sex: Male
  Weight: 102.5 kg

DRUGS (6)
  1. TERBINAFINE. [Concomitant]
     Active Substance: TERBINAFINE
     Indication: ONYCHOMYCOSIS
     Route: 048
  2. BRILINTA [Suspect]
     Active Substance: TICAGRELOR
     Indication: MYOCARDIAL INFARCTION
     Dosage: HALF A DOSE OF BRILINTA IN THE MORNING AND HALF A DOSE OF BRILINTA IN THE EVENING
     Route: 048
     Dates: start: 20180601, end: 201810
  3. ASPIRIN. [Concomitant]
     Active Substance: ASPIRIN
     Route: 048
     Dates: start: 2010
  4. ATORVASTATIN [Concomitant]
     Active Substance: ATORVASTATIN
     Indication: BLOOD CHOLESTEROL ABNORMAL
     Route: 048
  5. METFORMIN [Concomitant]
     Active Substance: METFORMIN HYDROCHLORIDE
     Indication: GLUCOSE TOLERANCE IMPAIRED
     Route: 048
     Dates: start: 2018
  6. BRILINTA [Suspect]
     Active Substance: TICAGRELOR
     Indication: STENT PLACEMENT
     Dosage: HALF A DOSE OF BRILINTA IN THE MORNING AND HALF A DOSE OF BRILINTA IN THE EVENING
     Route: 048
     Dates: start: 20180601, end: 201810

REACTIONS (6)
  - Weight increased [Unknown]
  - Dyspnoea [Recovering/Resolving]
  - Haemorrhage [Recovered/Resolved]
  - Confusional state [Unknown]
  - Intentional product misuse [Recovered/Resolved]
  - Anxiety [Unknown]

NARRATIVE: CASE EVENT DATE: 2018
